FAERS Safety Report 12760518 (Version 1)
Quarter: 2016Q3

REPORT INFORMATION
  Report Type: Spontaneous
  Country: ZA (occurrence: ZA)
  Receive Date: 20160919
  Receipt Date: 20160919
  Transmission Date: 20161109
  Serious: Yes (Death, Hospitalization)
  Sender: FDA-Public Use
  Company Number: ZA-SA-2016SA171754

PATIENT
  Age: 21 Year
  Sex: Female

DRUGS (1)
  1. RIFAMPICIN/ISONIAZID [Suspect]
     Active Substance: ISONIAZID\RIFAMPIN
     Indication: TUBERCULOSIS
     Dosage: 70 TABLETS OF 150 MG RIFAMPICIN/ISONIAZID 75 MG
     Route: 048

REACTIONS (7)
  - Blood creatinine increased [Recovered/Resolved]
  - Metabolic acidosis [Fatal]
  - Overdose [Unknown]
  - Acute kidney injury [Recovered/Resolved]
  - Coma scale abnormal [Fatal]
  - Intentional overdose [Unknown]
  - Depressed level of consciousness [Fatal]
